FAERS Safety Report 23462226 (Version 1)
Quarter: 2024Q1

REPORT INFORMATION
  Report Type: Spontaneous
  Country: US (occurrence: None)
  Receive Date: 20240130
  Receipt Date: 20240130
  Transmission Date: 20240410
  Serious: Yes (Hospitalization, Disabling)
  Sender: FDA-Public Use
  Company Number: None

PATIENT
  Age: 25 Year
  Sex: Female
  Weight: 56.7 kg

DRUGS (4)
  1. NITROFURANTOIN MONOHYDRATE MACROCRYSTALS [Suspect]
     Active Substance: NITROFURANTOIN\NITROFURANTOIN MONOHYDRATE
     Indication: Urinary tract infection
     Dates: start: 20231127, end: 20231203
  2. CLOBETASOL [Concomitant]
     Active Substance: CLOBETASOL
  3. KETOCONAZOLE [Concomitant]
     Active Substance: KETOCONAZOLE
  4. Hydrocortisone .5% [Concomitant]

REACTIONS (7)
  - Neuropathy peripheral [None]
  - Hypoaesthesia [None]
  - Paraesthesia [None]
  - Tendon pain [None]
  - Muscular weakness [None]
  - Peripheral sensory neuropathy [None]
  - Vitreous floaters [None]

NARRATIVE: CASE EVENT DATE: 20231204
